FAERS Safety Report 6176340-5 (Version None)
Quarter: 2009Q2

REPORT INFORMATION
  Report Type: 
  Country: None (occurrence: None)
  Receive Date: 20090501
  Receipt Date: 20090422
  Transmission Date: 20091009
  Serious: Yes (Hospitalization)
  Sender: FDA-Public Use
  Company Number: US-BIOGENIDEC-2009BI004239

PATIENT
  Age: 33 Year
  Sex: Female

DRUGS (2)
  1. AVONEX [Suspect]
     Indication: MULTIPLE SCLEROSIS
     Route: 030
     Dates: start: 20020401, end: 20030901
  2. AVONEX [Suspect]
     Route: 030
     Dates: start: 20030901, end: 20081101

REACTIONS (3)
  - CROHN'S DISEASE [None]
  - MIGRAINE [None]
  - VOMITING [None]
